FAERS Safety Report 7411941-5 (Version None)
Quarter: 2011Q2

REPORT INFORMATION
  Report Type: 
  Country: None (occurrence: None)
  Receive Date: 20110405
  Receipt Date: 20110322
  Transmission Date: 20111010
  Serious: Yes (Disabling)
  Sender: FDA-Public Use
  Company Number: 2011AP000401

PATIENT
  Age: 72 Year
  Sex: Male

DRUGS (8)
  1. LISINOPRIL [Concomitant]
  2. FINASTERIDE [Concomitant]
  3. ALFUZOSIN (ALFUZOSIN0 [Concomitant]
  4. AMLODIPINE BESYLATE [Suspect]
     Indication: HYPERTENSION
     Dosage: 10 MG, QD, PO
     Route: 048
  5. ATORVASTATIN (ATORVASTATIN) [Concomitant]
  6. ACETYLSALICYLIC ACID (ACETYLSALICYLIC ACID) [Concomitant]
  7. BISOPROLOL FUMARATE [Concomitant]
  8. FELODIPINE [Suspect]
     Dosage: 5 MG, QD, PO
     Route: 048

REACTIONS (8)
  - DRUG PRESCRIBING ERROR [None]
  - HAEMOGLOBIN DECREASED [None]
  - MYALGIA [None]
  - MUSCULOSKELETAL PAIN [None]
  - BLOOD CALCIUM DECREASED [None]
  - HIGH DENSITY LIPOPROTEIN INCREASED [None]
  - ARTHRALGIA [None]
  - WRONG DRUG ADMINISTERED [None]
